FAERS Safety Report 15083328 (Version 2)
Quarter: 2018Q2

REPORT INFORMATION
  Report Type: Spontaneous
  Country: US (occurrence: US)
  Receive Date: 20180628
  Receipt Date: 20180630
  Transmission Date: 20180711
  Serious: No
  Sender: FDA-Public Use
  Company Number: US-TEVA-2018-US-912304

PATIENT
  Sex: Female
  Weight: 70 kg

DRUGS (2)
  1. QVAR [Suspect]
     Active Substance: BECLOMETHASONE DIPROPIONATE
     Indication: MALAISE
     Dosage: DOSE STRENGTH:  80 UG/1?TWO PUFFS TWICE DAILY, EVERY 12 HOURS
     Dates: start: 20171228
  2. QVAR [Suspect]
     Active Substance: BECLOMETHASONE DIPROPIONATE
     Indication: COUGH
     Dates: start: 20171228

REACTIONS (4)
  - Cough [Unknown]
  - Malaise [Unknown]
  - Drug prescribing error [Unknown]
  - Drug ineffective for unapproved indication [Unknown]
